FAERS Safety Report 7704354-X (Version None)
Quarter: 2011Q3

REPORT INFORMATION
  Report Type: 
  Country: None (occurrence: None)
  Receive Date: 20110823
  Receipt Date: 20110817
  Transmission Date: 20111222
  Serious: Yes (Death, Hospitalization)
  Sender: FDA-Public Use
  Company Number: JP-MERCK-1107USA00298

PATIENT
  Age: 71 Year
  Sex: Male

DRUGS (8)
  1. WARFARIN [Concomitant]
     Route: 065
  2. BISOPROLOL FUMARATE [Concomitant]
     Route: 065
     Dates: start: 20080802
  3. PRAVASTATIN SODIUM [Concomitant]
     Route: 065
     Dates: start: 20061207
  4. REZALTAS [Concomitant]
     Route: 065
     Dates: start: 20110126
  5. MEXITIL [Concomitant]
     Route: 065
     Dates: start: 20070826
  6. JANUVIA [Suspect]
     Indication: TYPE 2 DIABETES MELLITUS
     Route: 048
     Dates: start: 20110309
  7. AMIODARONE HYDROCHLORIDE [Suspect]
     Indication: VENTRICULAR TACHYCARDIA
     Route: 048
     Dates: start: 20080815, end: 20110420
  8. AMARYL [Concomitant]
     Indication: TYPE 2 DIABETES MELLITUS
     Route: 065
     Dates: start: 20020815

REACTIONS (1)
  - INTERSTITIAL LUNG DISEASE [None]
